FAERS Safety Report 9555394 (Version 1)
Quarter: 2013Q3

REPORT INFORMATION
  Report Type: Spontaneous
  Country: US (occurrence: None)
  Receive Date: 20130906
  Receipt Date: 20130906
  Transmission Date: 20140515
  Serious: Yes (Hospitalization)
  Sender: FDA-Public Use
  Company Number: 163-POMAL-13080903

PATIENT
  Age: 70 Year
  Sex: Male

DRUGS (9)
  1. POMALYST [Suspect]
     Indication: PLASMA CELL MYELOMA
     Dosage: 4 MG, 21 IN 21 D, PO
     Route: 048
     Dates: start: 20130719
  2. ACYCLOVIR (ACICLOVIR) (UNKNOWN) [Concomitant]
  3. AMOXICILLIN (AMOXICILLIN) (UNKNOWN) [Concomitant]
  4. ASPIRIN (ACETYLSALICYLIC ACID) (UNKNOWN) (ACETYLSALICYLIC ACID) [Concomitant]
  5. COQ-10 (UBIDECARENONE) (UNKNOWN) [Concomitant]
  6. COUMADIN (WARFARIN SODIUM) (UNKNOWN) [Concomitant]
  7. CYCLOPHOSPHAMIDE (CYCLOPHOSPHAMIDE) (UNKNOWN)? [Concomitant]
  8. DEXAMETHASONE (DEXAMETHASONE) (UNKNOWN) [Concomitant]
  9. FISH OIL (FISH OIL) (UNKNOWN) [Concomitant]

REACTIONS (1)
  - Pneumonia [None]
